FAERS Safety Report 8467036-5 (Version None)
Quarter: 2012Q2

REPORT INFORMATION
  Report Type: 
  Country: None (occurrence: None)
  Receive Date: 20120626
  Receipt Date: 20120614
  Transmission Date: 20120825
  Serious: No
  Sender: FDA-Public Use
  Company Number: US-ASTRAZENECA-2012SE39852

PATIENT
  Age: 57 Year
  Sex: Female
  Weight: 76.2 kg

DRUGS (5)
  1. NEXIUM [Suspect]
     Indication: GASTROOESOPHAGEAL REFLUX DISEASE
     Route: 048
  2. NEXIUM [Suspect]
     Route: 048
  3. OMEPRAZOLE [Suspect]
     Indication: GASTROOESOPHAGEAL REFLUX DISEASE
     Route: 048
  4. BENICAR [Concomitant]
     Indication: BLOOD PRESSURE ABNORMAL
  5. ESTRADIOL [Concomitant]

REACTIONS (6)
  - CYSTITIS INTERSTITIAL [None]
  - DRUG DOSE OMISSION [None]
  - OESOPHAGEAL PAIN [None]
  - OFF LABEL USE [None]
  - DRUG INEFFECTIVE [None]
  - GASTROOESOPHAGEAL REFLUX DISEASE [None]
